FAERS Safety Report 7213097-0 (Version None)
Quarter: 2010Q4

REPORT INFORMATION
  Report Type: 
  Country: None (occurrence: None)
  Receive Date: 20101229
  Receipt Date: 20101216
  Transmission Date: 20110411
  Serious: Yes (Other)
  Sender: FDA-Public Use
  Company Number: 023962

PATIENT
  Sex: Female
  Weight: 50 kg

DRUGS (6)
  1. CIMZIA [Suspect]
     Indication: CROHN'S DISEASE
     Dosage: SEE IMAGE
     Route: 058
     Dates: start: 20040707, end: 20040804
  2. CIMZIA [Suspect]
     Indication: CROHN'S DISEASE
     Dosage: SEE IMAGE
     Route: 058
     Dates: start: 20040901, end: 20041221
  3. CIMZIA [Suspect]
     Indication: CROHN'S DISEASE
     Dosage: SEE IMAGE
     Route: 058
     Dates: start: 20050106, end: 20101117
  4. LANSOPRAZOLE [Concomitant]
  5. METHYLPREDNISOLONE [Concomitant]
  6. ISONICID [Concomitant]

REACTIONS (1)
  - BASAL CELL CARCINOMA [None]
